FAERS Safety Report 8123183-9 (Version None)
Quarter: 2012Q1

REPORT INFORMATION
  Report Type: 
  Country: None (occurrence: None)
  Receive Date: 20120208
  Receipt Date: 20120202
  Transmission Date: 20120608
  Serious: Yes (Hospitalization)
  Sender: FDA-Public Use
  Company Number: US-PERRIGO-12US000904

PATIENT
  Age: 49 Year
  Sex: Female

DRUGS (14)
  1. AMANTADINE HCL [Concomitant]
     Indication: PRODUCT USED FOR UNKNOWN INDICATION
     Dosage: UNK
     Route: 065
  2. FENTANYL CITRATE [Concomitant]
     Indication: PAIN
     Dosage: 12.5 MICROGRAM PATCH
     Route: 062
  3. LORAZEPAM [Concomitant]
     Indication: PRODUCT USED FOR UNKNOWN INDICATION
     Dosage: 1 MG, UNK
     Route: 048
  4. ACETAMINOPHEN AND HYDROCODONE BITARTRATE [Concomitant]
     Indication: HEADACHE
     Dosage: 10/650 MG
     Route: 049
  5. ACETAMINOPHEN AND HYDROCODONE BITARTRATE [Concomitant]
     Indication: PAIN
  6. DULOXETIME HYDROCHLORIDE [Concomitant]
     Indication: PRODUCT USED FOR UNKNOWN INDICATION
     Dosage: UNK
     Route: 065
  7. DIHYDROERGOTAMINE MESYLATE RX 1 MG/ML 9V8 [Suspect]
     Indication: MIGRAINE
     Dosage: 1 MG, SINGLE
     Route: 042
  8. HALOPERIDOL [Concomitant]
     Indication: HEADACHE
     Dosage: 0.5 MG, SINGLE
     Route: 042
  9. GABAPENTIN [Concomitant]
     Indication: HEADACHE
     Dosage: 4800 MG, UNK
     Route: 048
  10. NATALIZUMAB [Concomitant]
     Indication: PRODUCT USED FOR UNKNOWN INDICATION
     Dosage: UNK
     Route: 065
  11. VERAPAMIL [Suspect]
     Indication: HYPERTENSION
     Dosage: 120 MG, QD
     Route: 048
  12. MORPHINE SULFATE [Concomitant]
     Indication: PAIN
     Dosage: 15-30 MG Q 4 HR PRN
  13. PREGABALIN [Concomitant]
     Indication: PAIN
     Dosage: UNK
     Route: 065
  14. NICOTINE [Suspect]
     Indication: SMOKING CESSATION THERAPY
     Dosage: 7 MG PATCH, QD
     Route: 062

REACTIONS (4)
  - PRINZMETAL ANGINA [None]
  - DRUG INTERACTION [None]
  - NAUSEA [None]
  - TROPONIN I INCREASED [None]
